FAERS Safety Report 9017030 (Version 2)
Quarter: 2013Q1

REPORT INFORMATION
  Report Type: Spontaneous
  Country: US (occurrence: US)
  Receive Date: 20130117
  Receipt Date: 20130201
  Transmission Date: 20140127
  Serious: Yes (Life-Threatening, Other)
  Sender: FDA-Public Use
  Company Number: PHEH2013US001368

PATIENT
  Sex: Female

DRUGS (2)
  1. GLEEVEC [Suspect]
     Indication: CHRONIC MYELOID LEUKAEMIA
     Dosage: 400MG PER DAY
  2. ANTIFUNGAL [Suspect]

REACTIONS (4)
  - Feeling abnormal [Unknown]
  - Vulvovaginal mycotic infection [Unknown]
  - Drug level increased [Unknown]
  - Influenza [Unknown]
